FAERS Safety Report 7556997-4 (Version None)
Quarter: 2011Q2

REPORT INFORMATION
  Report Type: 
  Country: None (occurrence: None)
  Receive Date: 20110620
  Receipt Date: 20110614
  Transmission Date: 20111010
  Serious: Yes (Life-Threatening, Other)
  Sender: FDA-Public Use
  Company Number: PHHY2011US52497

PATIENT
  Sex: Female

DRUGS (6)
  1. VITAMIN TAB [Concomitant]
  2. AMLODIPINE [Concomitant]
     Dosage: 5 MG
  3. FEMARA [Suspect]
     Dosage: 2.5 MG, QD
     Dates: end: 20110610
  4. METFORMIN HCL [Concomitant]
     Dosage: 500 MG
  5. LEVOTHYROXINE SODIUM [Concomitant]
     Dosage: 75 UG
  6. IBUPROFEN [Concomitant]
     Dosage: 800 MG

REACTIONS (6)
  - FEELING ABNORMAL [None]
  - THROMBOSIS [None]
  - PAIN [None]
  - NEOPLASM MALIGNANT [None]
  - METASTASES TO BONE [None]
  - NEOPLASM PROGRESSION [None]
